FAERS Safety Report 21362678 (Version 2)
Quarter: 2022Q4

REPORT INFORMATION
  Report Type: Spontaneous
  Country: US (occurrence: US)
  Receive Date: 20220922
  Receipt Date: 20221008
  Transmission Date: 20230113
  Serious: Yes (Hospitalization)
  Sender: FDA-Public Use
  Company Number: US-TEVA-2022-US-2074081

PATIENT
  Age: 20 Year
  Sex: Female

DRUGS (4)
  1. DESMOPRESSIN [Suspect]
     Active Substance: DESMOPRESSIN
     Indication: Diabetes insipidus
     Dosage: 20 MICROGRAM DAILY;
     Route: 045
  2. DESMOPRESSIN [Suspect]
     Active Substance: DESMOPRESSIN
     Dosage: 40 MICROGRAM DAILY;
     Route: 045
  3. DESMOPRESSIN [Suspect]
     Active Substance: DESMOPRESSIN
     Route: 058
  4. DEXTROSE [Concomitant]
     Active Substance: DEXTROSE
     Indication: Hyponatraemia
     Route: 065

REACTIONS (2)
  - Rhinitis [Unknown]
  - Therapy non-responder [Unknown]
